FAERS Safety Report 11240184 (Version 1)
Quarter: 2015Q3

REPORT INFORMATION
  Report Type: Spontaneous
  Country: US (occurrence: None)
  Receive Date: 20150701
  Receipt Date: 20150701
  Transmission Date: 20151125
  Serious: No
  Sender: FDA-Public Use
  Company Number: None

PATIENT
  Age: 50 Year
  Sex: Male
  Weight: 124.74 kg

DRUGS (4)
  1. OXYCODONE [Suspect]
     Active Substance: OXYCODONE
     Indication: PAIN MANAGEMENT
     Route: 048
     Dates: start: 20150602, end: 20150630
  2. DIAZEPAM. [Concomitant]
     Active Substance: DIAZEPAM
  3. CAPSAICIN. [Concomitant]
     Active Substance: CAPSAICIN
  4. NEURONTIN [Concomitant]
     Active Substance: GABAPENTIN

REACTIONS (1)
  - Drug effect decreased [None]
